FAERS Safety Report 7818889-2 (Version None)
Quarter: 2011Q4

REPORT INFORMATION
  Report Type: 
  Country: None (occurrence: None)
  Receive Date: 20111017
  Receipt Date: 20111017
  Transmission Date: 20120403
  Serious: No
  Sender: FDA-Public Use
  Company Number: None

PATIENT
  Sex: Male
  Weight: 83.2 kg

DRUGS (1)
  1. CISPLATIN [Suspect]
     Dosage: 400 MG
     Dates: end: 20081208

REACTIONS (3)
  - PRODUCTIVE COUGH [None]
  - PYREXIA [None]
  - BACTERIAL TEST POSITIVE [None]
